FAERS Safety Report 19901088 (Version 3)
Quarter: 2022Q2

REPORT INFORMATION
  Report Type: Spontaneous
  Country: US (occurrence: US)
  Receive Date: 20210930
  Receipt Date: 20220505
  Transmission Date: 20220721
  Serious: No
  Sender: FDA-Public Use
  Company Number: US-PFIZER INC-202101146095

PATIENT
  Age: 61 Year
  Sex: Male

DRUGS (3)
  1. INLYTA [Suspect]
     Active Substance: AXITINIB
     Dosage: 5 MG
     Dates: start: 20210809
  2. INLYTA [Suspect]
     Active Substance: AXITINIB
     Dosage: 5 MG
     Dates: start: 20210914
  3. INLYTA [Suspect]
     Active Substance: AXITINIB
     Dosage: ALTERNATING 1 TABLET DAILY WITH 1 TABLET 12 HOURS APART)
     Route: 048

REACTIONS (13)
  - Off label use [Unknown]
  - Gingival pain [Not Recovered/Not Resolved]
  - Musculoskeletal stiffness [Not Recovered/Not Resolved]
  - Pain [Not Recovered/Not Resolved]
  - Ear pain [Unknown]
  - Irritability [Unknown]
  - Rash [Unknown]
  - Oral mucosal eruption [Unknown]
  - Peripheral swelling [Unknown]
  - Stomatitis [Unknown]
  - Diarrhoea [Unknown]
  - Nausea [Unknown]
  - Chills [Unknown]

NARRATIVE: CASE EVENT DATE: 20210101
